FAERS Safety Report 5291273-4 (Version None)
Quarter: 2007Q2

REPORT INFORMATION
  Report Type: 
  Country: None (occurrence: None)
  Receive Date: 20070409
  Receipt Date: 20070326
  Transmission Date: 20071010
  Serious: Yes (Other)
  Sender: FDA-Public Use
  Company Number: US-PFIZER INC-2006055753

PATIENT
  Sex: Female
  Weight: 61.2 kg

DRUGS (2)
  1. BEXTRA [Suspect]
     Indication: PAIN MANAGEMENT
  2. BEXTRA [Suspect]
     Indication: ARTHRITIS

REACTIONS (1)
  - CEREBROVASCULAR ACCIDENT [None]
